FAERS Safety Report 18201046 (Version 1)
Quarter: 2020Q3

REPORT INFORMATION
  Report Type: Spontaneous
  Country: US (occurrence: US)
  Receive Date: 20200827
  Receipt Date: 20200827
  Transmission Date: 20201103
  Serious: No
  Sender: FDA-Public Use
  Company Number: US-009507513-2007USA011819

PATIENT
  Age: 62 Year
  Sex: Male

DRUGS (6)
  1. IBRUTINIB [Concomitant]
     Active Substance: IBRUTINIB
     Indication: MARGINAL ZONE LYMPHOMA STAGE IV
     Dosage: 560 MILLIGRAM DAILY
     Route: 048
  2. IBRUTINIB [Concomitant]
     Active Substance: IBRUTINIB
     Indication: CENTRAL NERVOUS SYSTEM LYMPHOMA
  3. TEMODAR [Suspect]
     Active Substance: TEMOZOLOMIDE
     Indication: MARGINAL ZONE LYMPHOMA STAGE IV
     Dosage: 200 MILLIGRAM, D1?7 IN A 28?DAY CYCLE
     Route: 048
  4. TEMODAR [Suspect]
     Active Substance: TEMOZOLOMIDE
     Indication: CENTRAL NERVOUS SYSTEM LYMPHOMA
  5. RITUXIMAB. [Concomitant]
     Active Substance: RITUXIMAB
     Indication: MARGINAL ZONE LYMPHOMA STAGE IV
     Dosage: 375 MG/M^2 D1 IN A 28?DAY
     Route: 042
  6. RITUXIMAB. [Concomitant]
     Active Substance: RITUXIMAB
     Indication: CENTRAL NERVOUS SYSTEM LYMPHOMA

REACTIONS (1)
  - Product use in unapproved indication [Unknown]
